FAERS Safety Report 19609411 (Version 1)
Quarter: 2021Q3

REPORT INFORMATION
  Report Type: Other
  Country: JP (occurrence: JP)
  Receive Date: 20210726
  Receipt Date: 20210726
  Transmission Date: 20211014
  Serious: Yes (Other)
  Sender: FDA-Public Use
  Company Number: JP-ROCHE-2875255

PATIENT

DRUGS (7)
  1. MYCOPHENOLATE MOFETIL. [Suspect]
     Active Substance: MYCOPHENOLATE MOFETIL
     Indication: IMMUNOSUPPRESSION
     Route: 065
  2. RITUXIMAB. [Suspect]
     Active Substance: RITUXIMAB
     Indication: IMMUNOSUPPRESSION
     Route: 065
  3. SULFAMETHOXAZOLE/TRIMETHOPRIM [Suspect]
     Active Substance: SULFAMETHOXAZOLE\TRIMETHOPRIM
     Dosage: 80MG/400 MG TMP/SMX ONCE DAILY FOR PATIENTS WITHOUT RENAL IMPAIRMENT
     Route: 065
  4. SULFAMETHOXAZOLE/TRIMETHOPRIM [Suspect]
     Active Substance: SULFAMETHOXAZOLE\TRIMETHOPRIM
     Indication: PROPHYLAXIS
     Dosage: 160 MG/800 MG TMP/SMX THREE TIMES A WEEK
     Route: 065
  5. CYCLOPHOSPHAMIDE. [Suspect]
     Active Substance: CYCLOPHOSPHAMIDE
     Indication: IMMUNOSUPPRESSION
     Dosage: ORAL OR INTRAVENOUS
     Route: 065
  6. METHOTREXATE. [Suspect]
     Active Substance: METHOTREXATE
     Indication: IMMUNOSUPPRESSION
     Route: 065
  7. AZATHIOPRINE. [Suspect]
     Active Substance: AZATHIOPRINE
     Indication: IMMUNOSUPPRESSION
     Route: 065

REACTIONS (20)
  - Sepsis [Unknown]
  - Skin infection [Unknown]
  - Nocardiosis [Unknown]
  - Fungal infection [Unknown]
  - Biliary tract infection [Unknown]
  - Pneumocystis jirovecii pneumonia [Unknown]
  - Hepatic function abnormal [Unknown]
  - Cytopenia [Unknown]
  - Renal impairment [Unknown]
  - Hyperkalaemia [Unknown]
  - Pneumonia bacterial [Unknown]
  - Herpes zoster [Unknown]
  - Mycobacterial infection [Unknown]
  - Urinary tract infection [Unknown]
  - Cytomegalovirus infection [Unknown]
  - Soft tissue infection [Unknown]
  - Infection [Unknown]
  - Rash [Unknown]
  - Enteritis infectious [Unknown]
  - Parotitis [Unknown]
